FAERS Safety Report 8877702 (Version 1)
Quarter: 2012Q4

REPORT INFORMATION
  Report Type: Spontaneous
  Country: CA (occurrence: None)
  Receive Date: 20121026
  Receipt Date: 20121026
  Transmission Date: 20130627
  Serious: Yes (Hospitalization)
  Sender: FDA-Public Use
  Company Number: VENL20120012

PATIENT
  Age: 39 Year
  Sex: Female

DRUGS (10)
  1. VENLAFAXINE HYDROCHLORIDE [Suspect]
     Indication: PRODUCT USED FOR UNKNOWN INDICATION
     Dosage: Unknown, Unknown, Oral
  2. NARATRIPTAN [Suspect]
     Dosage: UNKNOWN, UNKNOWN, UNKNOWN
  3. SERTRALINE [Suspect]
  4. TOPIRAMATE [Suspect]
     Dosage: UNKNOWN, UNKNOWN, UNKNOWN
  5. METHADONE [Suspect]
     Dosage: UNKNOWN, UNKNOWN, UNKNOWN
  6. VENLAFAXINE [Concomitant]
  7. NARATRIPTAN (NARATRIPTAN) [Concomitant]
  8. SERTRALINE (SERTRALINE) (UNKNOWN) [Concomitant]
  9. TOPIRAMATE (TOPIRAMATE) (UNKNOWN) [Concomitant]
  10. METHADONE (METHADONE) (UNKNOWN) [Concomitant]

REACTIONS (2)
  - Cerebral vasoconstriction [None]
  - Subarachnoid haemorrhage [None]
